FAERS Safety Report 9826265 (Version 1)
Quarter: 2014Q1

REPORT INFORMATION
  Report Type: Spontaneous
  Country: US (occurrence: US)
  Receive Date: 20140117
  Receipt Date: 20140117
  Transmission Date: 20141002
  Serious: No
  Sender: FDA-Public Use
  Company Number: US-BIOGENIDEC-2014BI000815

PATIENT
  Age: 43 Year
  Sex: Female

DRUGS (10)
  1. TECFIDERA [Suspect]
     Indication: MULTIPLE SCLEROSIS
     Route: 048
  2. AMPYRA [Concomitant]
  3. VENLAFAXINE [Concomitant]
  4. TAMOXIFEN [Concomitant]
  5. WARFARIN [Concomitant]
  6. PRAMIPEXOLE [Concomitant]
  7. METHOCARBAMOL [Concomitant]
  8. ONDANSETRON [Concomitant]
  9. PREDNISONE [Concomitant]
  10. ZOLPIDEM [Concomitant]

REACTIONS (6)
  - Influenza [Unknown]
  - Headache [Unknown]
  - Nausea [Unknown]
  - Vomiting [Unknown]
  - Flushing [Unknown]
  - Feeling hot [Unknown]
